FAERS Safety Report 21338096 (Version 2)
Quarter: 2022Q3

REPORT INFORMATION
  Report Type: Spontaneous
  Country: US (occurrence: US)
  Receive Date: 20220915
  Receipt Date: 20220916
  Transmission Date: 20221026
  Serious: No
  Sender: FDA-Public Use
  Company Number: US-PFIZER INC-202201160897

PATIENT
  Age: 9 Month
  Sex: Female
  Weight: 7.48 kg

DRUGS (3)
  1. EUCRISA [Suspect]
     Active Substance: CRISABOROLE
     Indication: Rash
     Dosage: UNK , 2X/DAY
     Dates: start: 20220906, end: 20220910
  2. HYDROCORTISONE [Concomitant]
     Active Substance: HYDROCORTISONE
     Indication: Rash
     Dosage: UNK
     Dates: start: 202202
  3. ELIDEL [Concomitant]
     Active Substance: PIMECROLIMUS
     Indication: Rash
     Dosage: UNK, 2X/DAY

REACTIONS (5)
  - Off label use [Unknown]
  - Drug ineffective for unapproved indication [Unknown]
  - Swelling [Not Recovered/Not Resolved]
  - Rash [Unknown]
  - Condition aggravated [Unknown]

NARRATIVE: CASE EVENT DATE: 20220906
